FAERS Safety Report 9022200 (Version 2)
Quarter: 2013Q1

REPORT INFORMATION
  Report Type: Report from Study
  Country: FR (occurrence: FR)
  Receive Date: 20130118
  Receipt Date: 20130315
  Transmission Date: 20140127
  Serious: Yes (Other)
  Sender: FDA-Public Use
  Company Number: FR-ABBOTT-13P-056-1034583-00

PATIENT
  Age: 43 Year
  Sex: Female

DRUGS (3)
  1. HUMIRA [Suspect]
     Indication: CROHN^S DISEASE
     Route: 058
     Dates: start: 20080908
  2. HUMIRA [Suspect]
     Route: 058
     Dates: start: 20081013
  3. HUMIRA [Suspect]
     Route: 058
     Dates: start: 20090608, end: 20120705

REACTIONS (1)
  - Polyarteritis nodosa [Not Recovered/Not Resolved]
